FAERS Safety Report 14774115 (Version 7)
Quarter: 2019Q3

REPORT INFORMATION
  Report Type: Spontaneous
  Country: US (occurrence: US)
  Receive Date: 20180418
  Receipt Date: 20190923
  Transmission Date: 20191004
  Serious: Yes (Other)
  Sender: FDA-Public Use
  Company Number: US-PFIZER INC-2018157506

PATIENT
  Age: 64 Year
  Sex: Female
  Weight: 71 kg

DRUGS (2)
  1. LETROZOLE. [Suspect]
     Active Substance: LETROZOLE
     Dosage: 2.5 MG, 1X/DAY
     Route: 048
  2. IBRANCE [Suspect]
     Active Substance: PALBOCICLIB
     Indication: BREAST CANCER METASTATIC
     Dosage: 125 MG, CYCLIC (125MG ONCE A DAY BY MOUTH FOR 21 DAYS)
     Route: 048

REACTIONS (11)
  - Fatigue [Unknown]
  - White blood cell count decreased [Recovered/Resolved]
  - Skin exfoliation [Recovering/Resolving]
  - Lower limb fracture [Unknown]
  - Neoplasm progression [Unknown]
  - Burning sensation [Recovered/Resolved]
  - Dry skin [Unknown]
  - Erythema [Recovered/Resolved]
  - Pain [Recovered/Resolved]
  - Musculoskeletal stiffness [Recovered/Resolved]
  - Vein discolouration [Unknown]

NARRATIVE: CASE EVENT DATE: 201811
